FAERS Safety Report 7013741-7 (Version None)
Quarter: 2010Q3

REPORT INFORMATION
  Report Type: 
  Country: None (occurrence: None)
  Receive Date: 20100924
  Receipt Date: 20100920
  Transmission Date: 20110219
  Serious: Yes (Other)
  Sender: FDA-Public Use
  Company Number: IE-PFIZER INC-2010118656

PATIENT
  Age: 76 Year
  Sex: Female

DRUGS (6)
  1. VIBRAMYCIN [Suspect]
     Dosage: 100 MG, 1X/DAY
     Dates: start: 20100827, end: 20100906
  2. CRESTOR [Concomitant]
  3. TELFAST [Concomitant]
  4. CENTYL K [Concomitant]
  5. DIFLUCAN [Concomitant]
     Dosage: 150 MG, UNK
  6. OLMESARTAN MEDOXOMIL [Concomitant]

REACTIONS (3)
  - LIP SWELLING [None]
  - OEDEMA PERIPHERAL [None]
  - RASH [None]
